FAERS Safety Report 22376593 (Version 4)
Quarter: 2023Q2

REPORT INFORMATION
  Report Type: Spontaneous
  Country: US (occurrence: US)
  Receive Date: 20230528
  Receipt Date: 20230607
  Transmission Date: 20230722
  Serious: No
  Sender: FDA-Public Use
  Company Number: US-Dermavant-000578

PATIENT
  Age: 53 Year
  Sex: Female

DRUGS (1)
  1. TAPINAROF [Suspect]
     Active Substance: TAPINAROF
     Indication: Psoriasis
     Dosage: AREA OF APPLICATION: JAWLINE, FRONT AND BACK OF TORSO, ELBOWS, KNEES, FEET, UNDER THE BREAST, CHE...
     Route: 061
     Dates: start: 20230316, end: 202304

REACTIONS (4)
  - Therapeutic product effect decreased [Recovered/Resolved]
  - Skin burning sensation [Recovered/Resolved]
  - Skin discomfort [Recovered/Resolved]
  - Skin warm [None]

NARRATIVE: CASE EVENT DATE: 20230316
